FAERS Safety Report 5643767-7 (Version None)
Quarter: 2008Q1

REPORT INFORMATION
  Report Type: 
  Country: None (occurrence: None)
  Receive Date: 20080226
  Receipt Date: 20080204
  Transmission Date: 20080703
  Serious: Yes (Hospitalization)
  Sender: FDA-Public Use
  Company Number: 2008S1001777

PATIENT
  Age: 11 Day

DRUGS (1)
  1. ACYCLOVIR [Suspect]
     Dosage: 750 MG; ONCE;

REACTIONS (3)
  - BLOOD CREATININE INCREASED [None]
  - INCORRECT DOSE ADMINISTERED [None]
  - MEDICATION ERROR [None]
